FAERS Safety Report 4730113-6 (Version None)
Quarter: 2005Q3

REPORT INFORMATION
  Report Type: 
  Country: None (occurrence: None)
  Receive Date: 20050728
  Receipt Date: 20050718
  Transmission Date: 20060218
  Serious: Yes (Other)
  Sender: FDA-Public Use
  Company Number: HQWYE276819JUL05

PATIENT
  Age: 74 Year
  Sex: Female
  Weight: 62 kg

DRUGS (11)
  1. PHENERGAN [Suspect]
     Dosage: 25 MG EVERY 4 HOURS WHENEVER NECESSARY, ORAL
     Route: 048
     Dates: start: 20050717
  2. CALCIUM (CALCIUM) [Concomitant]
  3. PROTONIX [Concomitant]
  4. FERROUS GLUCONATE (FERROUS GLUCONATE) [Concomitant]
  5. DARVOCET-N 50 [Concomitant]
  6. DULCOLAX [Concomitant]
  7. MILK OF MAGNESIA (MAGNESIA HYDROXIDE) [Concomitant]
  8. TRAMADOL HCL [Concomitant]
  9. LEVOTHYROXINE SODIUM [Concomitant]
  10. PRAVACHOL [Concomitant]
  11. ACETAMINOPHEN [Concomitant]

REACTIONS (1)
  - HYPONATRAEMIA [None]
